FAERS Safety Report 18241791 (Version 1)
Quarter: 2020Q3

REPORT INFORMATION
  Report Type: Other
  Country: CA (occurrence: CA)
  Receive Date: 20200908
  Receipt Date: 20200908
  Transmission Date: 20201103
  Serious: Yes (Other)
  Sender: FDA-Public Use
  Company Number: CA-COVIS PHARMA B.V.-2020COV00414

PATIENT
  Age: 69 Year
  Sex: Female

DRUGS (26)
  1. FLUTICASONE PROPIONATE W/ SALMETEROL XINAFOATE [Suspect]
     Active Substance: FLUTICASONE PROPIONATE\SALMETEROL XINAFOATE
     Dosage: UNK, 2X/DAY
     Route: 055
  2. HYDROXYZINE [Suspect]
     Active Substance: HYDROXYZINE HYDROCHLORIDE
  3. CALCIUM CARBONATE. [Suspect]
     Active Substance: CALCIUM CARBONATE
  4. ALVESCO [Suspect]
     Active Substance: CICLESONIDE
     Dosage: 300 ?G, 2X/DAY
     Route: 055
  5. DAXAS [Suspect]
     Active Substance: ROFLUMILAST
     Dosage: 100 ?G, 1X/DAY
     Route: 048
  6. PANTOPRAZOLE [Suspect]
     Active Substance: PANTOPRAZOLE
     Dosage: UNK, 1X/DAY
  7. SPIRIVA [Suspect]
     Active Substance: TIOTROPIUM BROMIDE MONOHYDRATE
     Dosage: 2.5, UNK, 1X/DAY
     Route: 055
  8. SALBUTAMOL [Suspect]
     Active Substance: ALBUTEROL
  9. CELEBREX [Suspect]
     Active Substance: CELECOXIB
  10. CHLORPHENIRAMINE W/ PSEUDOEPHEDRINE [Suspect]
     Active Substance: CHLORPHENIRAMINE\PSEUDOEPHEDRINE
  11. OMALIZUMAB. [Suspect]
     Active Substance: OMALIZUMAB
     Dosage: 225 MG
  12. AZITHROMYCIN ANHYDROUS. [Suspect]
     Active Substance: AZITHROMYCIN ANHYDROUS
     Dosage: 250 MG, 1X/DAY
  13. SPIRIVA [Suspect]
     Active Substance: TIOTROPIUM BROMIDE MONOHYDRATE
     Dosage: UNK UNK, 1X/DAY
  14. VITAMIN D3 [Suspect]
     Active Substance: CHOLECALCIFEROL
  15. ZOPICLONE [Suspect]
     Active Substance: ZOPICLONE
     Dosage: UNK, 1X/DAY
  16. ALVESCO [Suspect]
     Active Substance: CICLESONIDE
     Dosage: 200 MG, 2X/DAY
  17. BENRALIZUMAB. [Suspect]
     Active Substance: BENRALIZUMAB
     Indication: ASTHMA
     Dosage: UNK
     Route: 042
     Dates: start: 201810
  18. DAXAS [Suspect]
     Active Substance: ROFLUMILAST
     Indication: PSEUDOMONAS INFECTION
     Dosage: 500 ?G, 1X/DAY
     Route: 048
  19. CALCIUM [Suspect]
     Active Substance: CALCIUM
  20. OMALIZUMAB. [Suspect]
     Active Substance: OMALIZUMAB
     Dosage: 225 MG, 2X/WEEK
  21. PREDNISONE. [Suspect]
     Active Substance: PREDNISONE
  22. SINGULAIR [Suspect]
     Active Substance: MONTELUKAST SODIUM
     Dosage: UNK, 1X/DAY
  23. VENTOLIN [Suspect]
     Active Substance: ALBUTEROL SULFATE
     Route: 055
  24. ALVESCO [Suspect]
     Active Substance: CICLESONIDE
     Dosage: 300 MG, 2X/DAY
  25. ALVESCO [Suspect]
     Active Substance: CICLESONIDE
     Dosage: 200 ?G, 2X/DAY
     Route: 055
  26. IMODIUM [Suspect]
     Active Substance: LOPERAMIDE HYDROCHLORIDE

REACTIONS (20)
  - Blood count abnormal [Unknown]
  - Bronchial secretion retention [Unknown]
  - Cough [Unknown]
  - Rales [Unknown]
  - Upper limb fracture [Unknown]
  - Fall [Unknown]
  - Bacterial disease carrier [Unknown]
  - Drug ineffective [Unknown]
  - Therapeutic product effect incomplete [Unknown]
  - Spinal cord compression [Unknown]
  - Wrist fracture [Unknown]
  - Bronchial wall thickening [Unknown]
  - Intervertebral disc protrusion [Unknown]
  - Obstructive airways disorder [Unknown]
  - Ill-defined disorder [Unknown]
  - Wheezing [Unknown]
  - Malaise [Unknown]
  - Asthma [Unknown]
  - Sputum discoloured [Unknown]
  - Dyspnoea [Unknown]
